FAERS Safety Report 16649319 (Version 2)
Quarter: 2019Q4

REPORT INFORMATION
  Report Type: Spontaneous
  Country: US (occurrence: US)
  Receive Date: 20190730
  Receipt Date: 20191001
  Transmission Date: 20200122
  Serious: Yes (Hospitalization, Other)
  Sender: FDA-Public Use
  Company Number: US-PFIZER INC-2019307369

PATIENT
  Age: 5 Year
  Sex: Male
  Weight: 15.42 kg

DRUGS (1)
  1. CHILDRENS ROBITUSSIN COUGH AND CHEST CONGESTION DM [Suspect]
     Active Substance: DEXTROMETHORPHAN HYDROBROMIDE\GUAIFENESIN
     Indication: COUGH
     Dosage: 5 ML, EVERY 4 HRS, (ONLY TAKEN TWICE)
     Dates: start: 20190706, end: 20190713

REACTIONS (15)
  - Bone pain [Recovered/Resolved]
  - Cognitive disorder [Recovered/Resolved]
  - Cough [Recovered/Resolved]
  - Pain [Unknown]
  - Rash [Recovered/Resolved]
  - Mobility decreased [Recovered/Resolved]
  - Pyrexia [Recovered/Resolved]
  - Headache [Recovered/Resolved]
  - Malaise [Unknown]
  - Hallucination [Recovered/Resolved]
  - Weight decreased [Recovered/Resolved]
  - Decreased appetite [Recovered/Resolved]
  - Erythema infectiosum [Unknown]
  - Dark circles under eyes [Unknown]
  - Gait disturbance [Unknown]

NARRATIVE: CASE EVENT DATE: 20190713
